FAERS Safety Report 9020224 (Version 1)
Quarter: 2013Q1

REPORT INFORMATION
  Report Type: Spontaneous
  Country: US (occurrence: US)
  Receive Date: 20130119
  Receipt Date: 20130119
  Transmission Date: 20140127
  Serious: No
  Sender: FDA-Public Use
  Company Number: US-ALLERGAN-1209810US

PATIENT
  Age: 47 Year
  Sex: Female

DRUGS (15)
  1. BOTOX? [Suspect]
     Indication: MIGRAINE
     Dosage: UNK
     Route: 030
     Dates: start: 20120705
  2. TOPAMAX [Concomitant]
     Indication: MIGRAINE
     Dosage: 50 MG, UNK
  3. VITAMIN B2 [Concomitant]
     Indication: PRODUCT USED FOR UNKNOWN INDICATION
  4. VITAMIN B12                        /00056201/ [Concomitant]
     Indication: PRODUCT USED FOR UNKNOWN INDICATION
  5. VITAMIN D /00107901/ [Concomitant]
     Indication: PRODUCT USED FOR UNKNOWN INDICATION
  6. RANITIDINE [Concomitant]
     Indication: GASTROOESOPHAGEAL REFLUX DISEASE
     Dosage: 300 MG, QHS
  7. CICLESONIDE [Concomitant]
     Indication: HYPERSENSITIVITY
     Dosage: 2 UNK, QHS
     Route: 055
  8. EXCEDRIN MIGRAINE [Concomitant]
     Indication: MIGRAINE
  9. URECOM [Concomitant]
     Indication: PRODUCT USED FOR UNKNOWN INDICATION
  10. TYLENOL /00020001/ [Concomitant]
     Indication: PRODUCT USED FOR UNKNOWN INDICATION
  11. HYDROCODONE [Concomitant]
     Indication: PRODUCT USED FOR UNKNOWN INDICATION
     Dosage: 1 UNK, UNK
  12. LORAZEPAM [Concomitant]
     Indication: PAIN
     Dosage: 0.5 MG, UNK
  13. LORAZEPAM [Concomitant]
     Indication: ANXIETY
  14. RELPAX [Concomitant]
     Indication: MIGRAINE
     Dosage: 40 MG, UNK
  15. ZOFRAN                             /00955301/ [Concomitant]
     Indication: NAUSEA
     Dosage: 4 MG, UNK

REACTIONS (4)
  - Migraine [Unknown]
  - Musculoskeletal stiffness [Unknown]
  - Photophobia [Unknown]
  - Lacrimation increased [Unknown]
